FAERS Safety Report 18381535 (Version 1)
Quarter: 2020Q4

REPORT INFORMATION
  Report Type: Report from Study
  Country: US (occurrence: US)
  Receive Date: 20201014
  Receipt Date: 20201014
  Transmission Date: 20210114
  Serious: Yes (Other)
  Sender: FDA-Public Use
  Company Number: US-MYLANLABS-2020M1086563

PATIENT
  Age: 72 Year
  Sex: Male

DRUGS (3)
  1. ITRACONAZOLE. [Suspect]
     Active Substance: ITRACONAZOLE
     Indication: DISSEMINATED COCCIDIOIDOMYCOSIS
     Route: 065
  2. AMPHOTERICIN-B [Concomitant]
     Active Substance: AMPHOTERICIN B
     Indication: DISSEMINATED COCCIDIOIDOMYCOSIS
     Route: 065
  3. VORICONAZOLE. [Suspect]
     Active Substance: VORICONAZOLE
     Indication: DISSEMINATED COCCIDIOIDOMYCOSIS
     Route: 065

REACTIONS (2)
  - Fluid overload [Unknown]
  - Photosensitivity reaction [Unknown]
